FAERS Safety Report 7331368-4 (Version None)
Quarter: 2011Q1

REPORT INFORMATION
  Report Type: 
  Country: None (occurrence: None)
  Receive Date: 20110304
  Receipt Date: 20110223
  Transmission Date: 20110831
  Serious: Yes (Other)
  Sender: FDA-Public Use
  Company Number: US-JNJFOC-20110300877

PATIENT
  Sex: Male
  Weight: 92.99 kg

DRUGS (5)
  1. LEVAQUIN [Suspect]
     Dosage: FOR 10 DAYS
     Route: 048
  2. LISINOPRIL [Concomitant]
     Indication: HYPERTENSION
     Route: 048
  3. LEVAQUIN [Suspect]
     Dosage: FOR 10 DAYS
     Route: 048
  4. LEVAQUIN [Suspect]
     Indication: GASTROINTESTINAL INFECTION
     Dosage: FOR 30 DAYS
     Route: 048
  5. FLAGYL [Suspect]
     Indication: ABDOMINAL PAIN
     Route: 065

REACTIONS (3)
  - ABDOMINAL PAIN [None]
  - LARGE INTESTINE PERFORATION [None]
  - ARTHRALGIA [None]
